FAERS Safety Report 7941336-7 (Version None)
Quarter: 2011Q4

REPORT INFORMATION
  Report Type: 
  Country: None (occurrence: None)
  Receive Date: 20111122
  Receipt Date: 20111028
  Transmission Date: 20120403
  Serious: Yes (Hospitalization)
  Sender: FDA-Public Use
  Company Number: 1000024257

PATIENT
  Age: 86 Year
  Sex: Female

DRUGS (4)
  1. INDAPAMIDE [Suspect]
     Indication: BLOOD PRESSURE
     Dosage: (1.25 MG),ORAL
     Route: 048
  2. ATIVAN (LORAZEPAM) (TABLETS) (LORAZEPAM) [Concomitant]
  3. ESCITALOPRAM OXALATE [Suspect]
     Dosage: 5 MG (5 MG,  1IN 1 D),ORAL, 2.5 MG (2.5 MG, 1 ,IN 1 D),ORAL
     Route: 048
     Dates: start: 20110912, end: 20110101
  4. ESCITALOPRAM OXALATE [Suspect]
     Dosage: 5 MG (5 MG,  1IN 1 D),ORAL, 2.5 MG (2.5 MG, 1 ,IN 1 D),ORAL
     Route: 048
     Dates: start: 20110910, end: 20110911

REACTIONS (6)
  - DIARRHOEA [None]
  - BLOOD ELECTROLYTES DECREASED [None]
  - FALL [None]
  - BLOOD SODIUM DECREASED [None]
  - NAUSEA [None]
  - BLOOD POTASSIUM DECREASED [None]
